FAERS Safety Report 17160708 (Version 1)
Quarter: 2019Q4

REPORT INFORMATION
  Report Type: Report from Study
  Country: US (occurrence: US)
  Receive Date: 20191216
  Receipt Date: 20191216
  Transmission Date: 20200122
  Serious: Yes (Hospitalization)
  Sender: FDA-Public Use
  Company Number: US-ACTELION-A-NJ2019-191536

PATIENT
  Age: 59 Year
  Sex: Female

DRUGS (2)
  1. TRACLEER [Suspect]
     Active Substance: BOSENTAN
     Indication: PULMONARY HYPERTENSION
     Dosage: 125 MG, BID
     Route: 048
  2. COUMADIN [Concomitant]
     Active Substance: WARFARIN SODIUM

REACTIONS (7)
  - Dysphonia [Unknown]
  - Sinus disorder [Unknown]
  - Bronchitis [Unknown]
  - Sinusitis [Unknown]
  - Pain in extremity [Unknown]
  - Malaise [Unknown]
  - Hospitalisation [Unknown]

NARRATIVE: CASE EVENT DATE: 20191201
